FAERS Safety Report 6049299-9 (Version None)
Quarter: 2009Q1

REPORT INFORMATION
  Report Type: 
  Country: None (occurrence: None)
  Receive Date: 20090123
  Receipt Date: 20090112
  Transmission Date: 20090719
  Serious: Yes (Other)
  Sender: FDA-Public Use
  Company Number: US-PFIZER INC-2008082802

PATIENT
  Sex: Female
  Weight: 63.5 kg

DRUGS (2)
  1. XANAX [Suspect]
     Indication: ANXIETY
     Dosage: 8 EVERY 1 DAY
     Dates: start: 19780101
  2. XANAX [Suspect]
     Indication: PANIC ATTACK

REACTIONS (8)
  - ANXIETY [None]
  - DEPENDENCE [None]
  - DRUG INEFFECTIVE [None]
  - DYSGEUSIA [None]
  - HEARING IMPAIRED [None]
  - JOINT INJURY [None]
  - NERVOUSNESS [None]
  - TREMOR [None]
